FAERS Safety Report 14372674 (Version 1)
Quarter: 2018Q1

REPORT INFORMATION
  Report Type: Other
  Country: US (occurrence: US)
  Receive Date: 20180110
  Receipt Date: 20180110
  Transmission Date: 20180509
  Serious: Yes (Death)
  Sender: FDA-Public Use
  Company Number: US-GENUS_LIFESCIENCES-USA-POI0580201800008

PATIENT
  Age: 77 Year
  Sex: Female

DRUGS (10)
  1. DIPHENHYDRAMINE. [Suspect]
     Active Substance: DIPHENHYDRAMINE
     Dates: end: 2016
  2. PREGABALIN. [Suspect]
     Active Substance: PREGABALIN
     Dates: end: 2016
  3. POTASSIUM CHLORIDE ORAL SOLUTION [Suspect]
     Active Substance: POTASSIUM CHLORIDE
     Dates: end: 2016
  4. CINNAMALDEHYDE [Suspect]
     Active Substance: CINNAMALDEHYDE
     Dates: end: 2016
  5. IBUPROFEN. [Suspect]
     Active Substance: IBUPROFEN
     Dates: end: 2016
  6. FUROSEMIDE. [Suspect]
     Active Substance: FUROSEMIDE
     Dates: end: 2016
  7. GLIMEPIRIDE. [Suspect]
     Active Substance: GLIMEPIRIDE
     Dates: end: 2016
  8. METFORMIN [Suspect]
     Active Substance: METFORMIN HYDROCHLORIDE
     Dates: end: 2016
  9. OMEPRAZOLE. [Suspect]
     Active Substance: OMEPRAZOLE
     Dates: end: 2016
  10. PAROXETINE. [Suspect]
     Active Substance: PAROXETINE
     Dates: end: 2016

REACTIONS (1)
  - Completed suicide [Fatal]

NARRATIVE: CASE EVENT DATE: 2016
